FAERS Safety Report 9285594 (Version 2)
Quarter: 2013Q3

REPORT INFORMATION
  Report Type: Spontaneous
  Country: FI (occurrence: FI)
  Receive Date: 20130513
  Receipt Date: 20130702
  Transmission Date: 20140515
  Serious: Yes (Hospitalization, Other)
  Sender: FDA-Public Use
  Company Number: PHHY2013FI046966

PATIENT
  Sex: Female

DRUGS (3)
  1. GILENYA [Suspect]
     Indication: MULTIPLE SCLEROSIS
     Dosage: 0.5 MG, QD
     Route: 048
     Dates: start: 20130314
  2. VARILRIX [Suspect]
     Dosage: UNK UKN, UNK
     Dates: start: 20130215
  3. VARILRIX [Suspect]
     Dosage: UNK UKN, UNK
     Dates: start: 20130306

REACTIONS (6)
  - Facial paresis [Recovered/Resolved]
  - VIIth nerve paralysis [Recovered/Resolved]
  - Myokymia [Not Recovered/Not Resolved]
  - Swelling face [Recovered/Resolved]
  - Central nervous system lesion [Unknown]
  - Vaccination error [Unknown]
